FAERS Safety Report 15115221 (Version 1)
Quarter: 2018Q3

REPORT INFORMATION
  Report Type: Spontaneous
  Country: US (occurrence: US)
  Receive Date: 20180706
  Receipt Date: 20180706
  Transmission Date: 20181010
  Serious: No
  Sender: FDA-Public Use
  Company Number: US-ALLERGAN-1822667US

PATIENT
  Sex: Female
  Weight: 136.5 kg

DRUGS (1)
  1. VRAYLAR [Suspect]
     Active Substance: CARIPRAZINE
     Indication: PRODUCT USED FOR UNKNOWN INDICATION
     Dosage: 7.5 MG, UNKNOWN
     Route: 065

REACTIONS (3)
  - Depression [Not Recovered/Not Resolved]
  - Hypomania [Not Recovered/Not Resolved]
  - Off label use [Unknown]
